FAERS Safety Report 10700252 (Version 1)
Quarter: 2015Q1

REPORT INFORMATION
  Report Type: Spontaneous
  Country: US (occurrence: US)
  Receive Date: 20150109
  Receipt Date: 20150109
  Transmission Date: 20150721
  Serious: No
  Sender: FDA-Public Use
  Company Number: US-PFIZER INC-2015005291

PATIENT
  Age: 73 Year
  Sex: Female
  Weight: 64 kg

DRUGS (12)
  1. MICROZIDE [Concomitant]
     Active Substance: HYDROCHLOROTHIAZIDE
     Dosage: 12.5 MG, 1X/DAY, EVERY MORNING
     Route: 048
  2. LEVOTHROID [Concomitant]
     Active Substance: LEVOTHYROXINE SODIUM
     Dosage: 100 ?G, 1X/DAY, EVERY MORNING BEFORE BREAKFAST
     Route: 048
  3. SYNTHROID [Concomitant]
     Active Substance: LEVOTHYROXINE SODIUM
     Dosage: 75 ?G, 1X/DAY
     Route: 048
  4. CENTRUM SILVER [Concomitant]
     Active Substance: VITAMINS
     Dosage: UNK, 1X/DAY, EVERY MORNING
     Route: 048
  5. POTASSIUM CHLORIDE. [Concomitant]
     Active Substance: POTASSIUM CHLORIDE
     Dosage: 20 MEQ, 1X/DAY, EVERY MORNING
     Route: 048
  6. ENALAPRIL MALEATE. [Concomitant]
     Active Substance: ENALAPRIL MALEATE
     Dosage: 10 MG, 1X/DAY, EVERY MORNING
     Route: 048
  7. AROMASIN [Suspect]
     Active Substance: EXEMESTANE
     Indication: BREAST CANCER
     Dosage: 25 MG, DAILY
     Route: 048
  8. CALTRATE 600+D [Concomitant]
     Dosage: 1 DF, 2X/DAY
     Route: 048
  9. FERROUS SULFATE [Concomitant]
     Active Substance: FERROUS SULFATE\FERROUS SULFATE, DRIED
     Dosage: 325 MG, 1X/DAY, EVERY MORNING
     Route: 048
  10. OMEPRAZOLE. [Concomitant]
     Active Substance: OMEPRAZOLE
     Dosage: 20 MG, 1X/DAY, EVERY MORNING
     Route: 048
  11. VITAMIN B COMPLEX [Concomitant]
     Active Substance: CYANOCOBALAMIN\DEXPANTHENOL\NIACINAMIDE\PYRIDOXINE HYDROCHLORIDE\RIBOFLAVIN 5^-PHOSPHATE SODIUM\THIAMINE HYDROCHLORIDE\VITAMIN B COMPLEX
     Dosage: UNK, 1X/DAY
     Route: 048
  12. SYNTHROID [Concomitant]
     Active Substance: LEVOTHYROXINE SODIUM
     Dosage: 100 ?G, 1X/DAY, EVERY MORNING BEFORE BREAKFAST
     Route: 048

REACTIONS (1)
  - Blood pressure increased [Unknown]
